FAERS Safety Report 22033781 (Version 1)
Quarter: 2023Q1

REPORT INFORMATION
  Report Type: Spontaneous
  Country: US (occurrence: US)
  Receive Date: 20230224
  Receipt Date: 20230224
  Transmission Date: 20230417
  Serious: Yes (Other)
  Sender: FDA-Public Use
  Company Number: US-PROCTER_AND_GAMBLE-GS23017646

PATIENT
  Age: 82 Year
  Sex: Male

DRUGS (1)
  1. CREST COMPLETE MULTI-BENEFIT WHITENING PLUS SCOPE [Suspect]
     Active Substance: SODIUM FLUORIDE
     Dosage: ENOUGH TO COVER A TOOTHBRUSH ONCE A DAY OR TWICE
     Route: 002
     Dates: end: 2023

REACTIONS (3)
  - Lip and/or oral cavity cancer [Unknown]
  - Oral mucosal exfoliation [Unknown]
  - Coating in mouth [Unknown]
